FAERS Safety Report 8002939-7 (Version None)
Quarter: 2011Q4

REPORT INFORMATION
  Report Type: 
  Country: None (occurrence: None)
  Receive Date: 20111222
  Receipt Date: 20110329
  Transmission Date: 20120403
  Serious: No
  Sender: FDA-Public Use
  Company Number: US-GLAXOSMITHKLINE-A0921642A

PATIENT
  Age: 70 Year
  Sex: Male

DRUGS (6)
  1. HYZAAR [Concomitant]
  2. VIAGRA [Concomitant]
  3. AVODART [Suspect]
     Indication: BENIGN PROSTATIC HYPERPLASIA
     Dosage: .5MG PER DAY
     Route: 048
     Dates: start: 20101201
  4. ATENOLOL [Concomitant]
  5. PANTOPRAZOLE [Concomitant]
  6. LEVITRA [Concomitant]

REACTIONS (2)
  - DRUG INEFFECTIVE [None]
  - ERECTILE DYSFUNCTION [None]
